FAERS Safety Report 12288702 (Version 1)
Quarter: 2016Q2

REPORT INFORMATION
  Report Type: Spontaneous
  Country: CA (occurrence: CA)
  Receive Date: 20160421
  Receipt Date: 20160421
  Transmission Date: 20160815
  Serious: Yes (Life-Threatening, Hospitalization, Other)
  Sender: FDA-Public Use
  Company Number: CA-BAXTER-2016BAX019944

PATIENT
  Age: 83 Year
  Sex: Male
  Weight: 77 kg

DRUGS (13)
  1. METRONIDAZOLE 5MG/ML INJECTION [Suspect]
     Active Substance: METRONIDAZOLE
     Indication: OFF LABEL USE
  2. MEROPENEM. [Suspect]
     Active Substance: MEROPENEM
     Indication: PSEUDOMONAS INFECTION
  3. HUMIRA [Suspect]
     Active Substance: ADALIMUMAB
     Indication: RHEUMATOID ARTHRITIS
     Dosage: SOLUTION SUBCUTANEOUS
     Route: 058
  4. MYCAMINE [Suspect]
     Active Substance: MICAFUNGIN SODIUM
     Indication: IMMUNODEFICIENCY
  5. VANCOMYCIN HYDROCHLORIDDE FOR INJECTION, USP [Suspect]
     Active Substance: VANCOMYCIN HYDROCHLORIDE
     Indication: KIDNEY INFECTION
     Dosage: POWDER FOR SOLUTION INTRAVENOUS
     Route: 042
  6. ACYCLOVIR SODIUM. [Suspect]
     Active Substance: ACYCLOVIR SODIUM
     Indication: HERPES SIMPLEX OESOPHAGITIS
     Dosage: SOLUTION INTRAVENOUS
     Route: 042
  7. METHOTREXATE [Suspect]
     Active Substance: METHOTREXATE
     Indication: RHEUMATOID ARTHRITIS
     Route: 048
  8. MYCAMINE [Suspect]
     Active Substance: MICAFUNGIN SODIUM
     Indication: URETHRITIS
     Dosage: POWDER FOR SOLUTION INTRAVENOUS
     Route: 042
  9. MEROPENEM. [Suspect]
     Active Substance: MEROPENEM
     Indication: IMMUNODEFICIENCY
     Dosage: POWDER FOR SOLUTION INTRAVENOUS
     Route: 042
  10. MEROPENEM. [Suspect]
     Active Substance: MEROPENEM
     Indication: URINARY TRACT INFECTION
  11. METRONIDAZOLE 5MG/ML INJECTION [Suspect]
     Active Substance: METRONIDAZOLE
     Indication: CLOSTRIDIUM DIFFICILE INFECTION
  12. METRONIDAZOLE 5MG/ML INJECTION [Suspect]
     Active Substance: METRONIDAZOLE
     Indication: URETHRITIS
     Dosage: LIQUID INTRAVENOUS
     Route: 042
  13. METRONIDAZOLE 5MG/ML INJECTION [Suspect]
     Active Substance: METRONIDAZOLE
     Indication: IMMUNODEFICIENCY

REACTIONS (5)
  - C-reactive protein increased [Not Recovered/Not Resolved]
  - Herpes simplex oesophagitis [Not Recovered/Not Resolved]
  - Infection [Not Recovered/Not Resolved]
  - Renal failure [Not Recovered/Not Resolved]
  - Anaemia [Not Recovered/Not Resolved]
